FAERS Safety Report 23041935 (Version 1)
Quarter: 2023Q4

REPORT INFORMATION
  Report Type: Spontaneous
  Country: US (occurrence: US)
  Receive Date: 20231007
  Receipt Date: 20231007
  Transmission Date: 20240110
  Serious: No
  Sender: FDA-Public Use
  Company Number: US-TAKEDA-2023TUS096000

PATIENT
  Age: 89 Year
  Sex: Female

DRUGS (1)
  1. MOTEGRITY [Suspect]
     Active Substance: PRUCALOPRIDE SUCCINATE
     Indication: Constipation
     Dosage: 1 MILLIGRAM, QD
     Route: 065

REACTIONS (7)
  - Influenza like illness [Unknown]
  - Mood altered [Unknown]
  - Asthenia [Unknown]
  - Head discomfort [Unknown]
  - Gastrointestinal hypomotility [Unknown]
  - Feeling abnormal [Unknown]
  - Fatigue [Unknown]
